FAERS Safety Report 24200267 (Version 1)
Quarter: 2024Q3

REPORT INFORMATION
  Report Type: Spontaneous
  Country: US (occurrence: None)
  Receive Date: 20240809
  Receipt Date: 20240809
  Transmission Date: 20241017
  Serious: Yes (Hospitalization)
  Sender: Public
  Company Number: None

PATIENT
  Age: 26 Year
  Sex: Male

DRUGS (1)
  1. BRIUMVI [Suspect]
     Active Substance: UBLITUXIMAB-XIIY
     Indication: Multiple sclerosis
     Dosage: OTHER FREQUENCY : EVERY 24 WEEKS;?
     Route: 042
     Dates: start: 20240801, end: 20240801

REACTIONS (7)
  - Hypertension [None]
  - Dyspnoea [None]
  - Hyperhidrosis [None]
  - Anxiety [None]
  - Flank pain [None]
  - Chills [None]
  - White blood cell count increased [None]

NARRATIVE: CASE EVENT DATE: 20240801
